FAERS Safety Report 23944514 (Version 1)
Quarter: 2024Q2

REPORT INFORMATION
  Report Type: Spontaneous
  Country: BE (occurrence: BE)
  Receive Date: 20240606
  Receipt Date: 20240606
  Transmission Date: 20240716
  Serious: Yes (Other)
  Sender: FDA-Public Use
  Company Number: BE-002147023-NVSC2024BE034024

PATIENT
  Age: 90 Year
  Sex: Female

DRUGS (1)
  1. BEOVU [Suspect]
     Active Substance: BROLUCIZUMAB-DBLL
     Indication: Age-related macular degeneration
     Dosage: UNK
     Route: 031

REACTIONS (6)
  - Retinal artery occlusion [Unknown]
  - Vitritis [Recovered/Resolved]
  - Anterior chamber inflammation [Recovered/Resolved]
  - Visual acuity reduced [Not Recovered/Not Resolved]
  - Retinal vascular occlusion [Recovered/Resolved with Sequelae]
  - Retinal degeneration [Unknown]
